FAERS Safety Report 7549372-X (Version None)
Quarter: 2011Q2

REPORT INFORMATION
  Report Type: 
  Country: None (occurrence: None)
  Receive Date: 20110608
  Receipt Date: 20110531
  Transmission Date: 20111010
  Serious: Yes (Other)
  Sender: FDA-Public Use
  Company Number: 2011SP023012

PATIENT
  Sex: Female

DRUGS (1)
  1. MARVELON (DESOGESTREL/ETHINYLESTRADIOL /00570801/) [Suspect]
     Indication: PRODUCT USED FOR UNKNOWN INDICATION
     Dates: start: 20080101

REACTIONS (2)
  - HAEMATOMA [None]
  - THROMBOCYTOPENIA [None]
